FAERS Safety Report 9802597 (Version 4)
Quarter: 2014Q1

REPORT INFORMATION
  Report Type: Spontaneous
  Country: US (occurrence: US)
  Receive Date: 20140108
  Receipt Date: 20140324
  Transmission Date: 20141002
  Serious: Yes (Hospitalization, Other)
  Sender: FDA-Public Use
  Company Number: US-BIOGENIDEC-2014BI000062

PATIENT
  Age: 43 Year
  Sex: Female
  Weight: 73 kg

DRUGS (12)
  1. AVONEX [Suspect]
     Indication: MULTIPLE SCLEROSIS
     Route: 030
     Dates: start: 20010602
  2. AVONEX [Suspect]
     Indication: MULTIPLE SCLEROSIS
     Route: 030
     Dates: start: 20120813, end: 2013
  3. AVONEX [Suspect]
     Indication: MULTIPLE SCLEROSIS
     Route: 030
     Dates: start: 2013
  4. IBUPROFEN [Concomitant]
  5. VOLTAREN [Concomitant]
     Route: 048
  6. NUVIGIL [Concomitant]
     Indication: FATIGUE
     Route: 048
     Dates: start: 20120328
  7. DESOGEN [Concomitant]
     Route: 048
  8. DICLOFENAC [Concomitant]
     Route: 048
  9. VITAMIN D [Concomitant]
     Route: 048
  10. PERCOCET [Concomitant]
     Indication: PAIN
     Route: 048
  11. FENTANYL [Concomitant]
     Route: 062
  12. HYDROCODONE [Concomitant]

REACTIONS (19)
  - Radiculitis cervical [Not Recovered/Not Resolved]
  - Gallbladder disorder [Unknown]
  - Narcolepsy [Not Recovered/Not Resolved]
  - Vitamin B1 decreased [Unknown]
  - Back pain [Not Recovered/Not Resolved]
  - Dry eye [Unknown]
  - Intervertebral disc displacement [Unknown]
  - Migraine [Unknown]
  - Arrhythmia [Unknown]
  - Arthralgia [Recovered/Resolved]
  - Pain in extremity [Recovered/Resolved]
  - Depression [Unknown]
  - Heart rate increased [Unknown]
  - Influenza like illness [Recovered/Resolved]
  - Intervertebral disc injury [Not Recovered/Not Resolved]
  - Scar [Recovered/Resolved]
  - Aphagia [Recovered/Resolved]
  - Local swelling [Recovered/Resolved]
  - Pharyngeal oedema [Recovered/Resolved]
